FAERS Safety Report 5284294-9 (Version None)
Quarter: 2007Q1

REPORT INFORMATION
  Report Type: 
  Country: None (occurrence: None)
  Receive Date: 20070321
  Receipt Date: 20070307
  Transmission Date: 20070707
  Serious: Yes (Life-Threatening, Hospitalization)
  Sender: FDA-Public Use
  Company Number: THYM-11341

PATIENT
  Age: 27 Year
  Sex: Male
  Weight: 114 kg

DRUGS (15)
  1. THYMOGLOBULIN [Suspect]
     Indication: RENAL TRANSPLANT
     Dosage: 170 MG QD; IV
     Route: 042
     Dates: start: 20070302, end: 20070302
  2. BASILIXIMAB [Concomitant]
  3. DEXAMETHASONE [Concomitant]
  4. CEFAZOLIN [Concomitant]
  5. MYCOPHENOLATE MOFETIL [Concomitant]
  6. PANTOPRAZOLE [Concomitant]
  7. ATENOLOL [Concomitant]
  8. VALGANCICLOVIR HCL [Concomitant]
  9. ASPIRIN [Concomitant]
  10. CHOLECALCIFEROL [Concomitant]
  11. CALCIUM [Concomitant]
  12. HYDROMORPHONE HCL [Concomitant]
  13. DARBEPOETIN [Concomitant]
  14. FUROSEMIDE [Concomitant]
  15. MORPHINE [Concomitant]

REACTIONS (2)
  - ACUTE PULMONARY OEDEMA [None]
  - DIALYSIS [None]
